FAERS Safety Report 9643555 (Version 1)
Quarter: 2013Q4

REPORT INFORMATION
  Report Type: Spontaneous
  Country: GB (occurrence: None)
  Receive Date: 20131022
  Receipt Date: 20131022
  Transmission Date: 20140711
  Serious: Yes (Hospitalization)
  Sender: FDA-Public Use
  Company Number: AUR-APL-2013-08804

PATIENT
  Sex: Male

DRUGS (1)
  1. METFORMIN [Suspect]
     Indication: TYPE 2 DIABETES MELLITUS

REACTIONS (8)
  - Nausea [None]
  - Vomiting [None]
  - Weight decreased [None]
  - Renal failure acute [None]
  - Renal failure acute [None]
  - Dehydration [None]
  - Gastritis [None]
  - Oesophageal candidiasis [None]
